FAERS Safety Report 7888855-X (Version None)
Quarter: 2011Q4

REPORT INFORMATION
  Report Type: 
  Country: None (occurrence: None)
  Receive Date: 20111031
  Receipt Date: 20111021
  Transmission Date: 20120403
  Serious: Yes (Hospitalization)
  Sender: FDA-Public Use
  Company Number: 2011SP049658

PATIENT
  Age: 84 Year
  Sex: Female

DRUGS (2)
  1. MIRTAZAPINE [Suspect]
     Indication: PRODUCT USED FOR UNKNOWN INDICATION
     Dosage: 15 MG;QD;PO ; PO
     Route: 048
     Dates: start: 20110601, end: 20110907
  2. MIRTAZAPINE [Suspect]
     Indication: PRODUCT USED FOR UNKNOWN INDICATION
     Dosage: 15 MG;QD;PO ; PO
     Route: 048
     Dates: start: 20110910

REACTIONS (5)
  - PARANOIA [None]
  - FALL [None]
  - HEAD INJURY [None]
  - CONFUSIONAL STATE [None]
  - AGGRESSION [None]
